FAERS Safety Report 6151201-6 (Version None)
Quarter: 2009Q2

REPORT INFORMATION
  Report Type: 
  Country: None (occurrence: None)
  Receive Date: 20090408
  Receipt Date: 20090408
  Transmission Date: 20091009
  Serious: Yes (Other)
  Sender: FDA-Public Use
  Company Number: None

PATIENT
  Age: 32 Year
  Sex: Male
  Weight: 113.3993 kg

DRUGS (1)
  1. QUICKEN LUBRICANT NONE NANOLUBE INC. [Suspect]
     Indication: ARTHRALGIA
     Dosage: IMPOSSIBLE TO MEASURE AS NEEDED TOP
     Route: 061
     Dates: start: 20090111, end: 20090111

REACTIONS (4)
  - APPLICATION SITE RASH [None]
  - APPLICATION SITE REACTION [None]
  - PRODUCT QUALITY ISSUE [None]
  - SKIN DISORDER [None]
